FAERS Safety Report 8230998-5 (Version None)
Quarter: 2012Q1

REPORT INFORMATION
  Report Type: 
  Country: None (occurrence: None)
  Receive Date: 20120320
  Receipt Date: 20120313
  Transmission Date: 20120608
  Serious: Yes (Other)
  Sender: FDA-Public Use
  Company Number: 131211

PATIENT
  Age: 21 Year
  Sex: Female
  Weight: 53 kg

DRUGS (2)
  1. METHOTREXATE [Suspect]
     Indication: GESTATIONAL TROPHOBLASTIC TUMOUR
     Dosage: 40MG SUBCUTANEOUSLY
     Route: 058
     Dates: start: 20120312
  2. METHOTREXATE [Suspect]
     Indication: METASTASIS
     Dosage: 40MG SUBCUTANEOUSLY
     Route: 058
     Dates: start: 20120312

REACTIONS (2)
  - MEDICATION ERROR [None]
  - EXPIRED DRUG ADMINISTERED [None]
